FAERS Safety Report 5022304-4 (Version None)
Quarter: 2006Q2

REPORT INFORMATION
  Report Type: 
  Country: None (occurrence: None)
  Receive Date: 20060609
  Receipt Date: 20060602
  Transmission Date: 20061013
  Serious: Yes (Other)
  Sender: FDA-Public Use
  Company Number: DK-GLAXOSMITHKLINE-B0426731A

PATIENT
  Sex: Male
  Weight: 3.8 kg

DRUGS (2)
  1. ZOFRAN [Suspect]
     Dates: start: 20051021, end: 20051021
  2. CHLORBUTOL [Concomitant]
     Dates: start: 20051019, end: 20051120

REACTIONS (4)
  - CONGENITAL BLADDER ANOMALY [None]
  - DRUG EXPOSURE DURING PREGNANCY [None]
  - HYDRONEPHROSIS [None]
  - URINARY TRACT MALFORMATION [None]
